FAERS Safety Report 23337747 (Version 1)
Quarter: 2023Q4

REPORT INFORMATION
  Report Type: Spontaneous
  Country: US (occurrence: US)
  Receive Date: 20231226
  Receipt Date: 20231226
  Transmission Date: 20240110
  Serious: Yes (Other)
  Sender: FDA-Public Use
  Company Number: US-GRAVITIPHARMA-GRA-2312-US-LIT-0050

PATIENT
  Age: 59 Year
  Sex: Male

DRUGS (9)
  1. HYDROXYZINE HYDROCHLORIDE [Suspect]
     Active Substance: HYDROXYZINE HYDROCHLORIDE
     Indication: Pruritus
  2. ACITRETIN [Concomitant]
     Active Substance: ACITRETIN
     Indication: Product used for unknown indication
  3. ADALIMUMAB [Concomitant]
     Active Substance: ADALIMUMAB\ISOPROPYL ALCOHOL
     Dosage: 5 MONTHS
  4. CLOBETASOL [Concomitant]
     Active Substance: CLOBETASOL
  5. CYCLOSPORINE [Concomitant]
     Active Substance: CYCLOSPORINE
  6. DUPILUMAB [Concomitant]
     Active Substance: DUPILUMAB
     Dosage: 2 MONTHS
  7. GUSELKUMAB [Concomitant]
     Active Substance: GUSELKUMAB
  8. INFLIXIMAB [Concomitant]
     Active Substance: INFLIXIMAB
     Indication: Product used for unknown indication
  9. PREDNISONE [Concomitant]
     Active Substance: PREDNISONE

REACTIONS (2)
  - Delusion of parasitosis [Recovered/Resolved]
  - Product communication issue [Unknown]
